FAERS Safety Report 5078185-6 (Version None)
Quarter: 2006Q3

REPORT INFORMATION
  Report Type: 
  Country: None (occurrence: None)
  Receive Date: 20060725
  Receipt Date: 20060329
  Transmission Date: 20061208
  Serious: No
  Sender: FDA-Public Use
  Company Number: 2005-BP-20803BP

PATIENT
  Age: 41 Year
  Sex: Female
  Weight: 114.5 kg

DRUGS (4)
  1. APTIVUS/RITONAVIR CAPSULES [Suspect]
     Indication: HIV INFECTION
     Dosage: SEE TEXT (SEE TEXT, STRENGTH: 250MG/100MG DOSE: 2 CAPSULES BID), PO
     Route: 048
     Dates: start: 20051103, end: 20051108
  2. EPZICOM [Concomitant]
  3. VIREAD [Concomitant]
  4. FUZEON [Concomitant]

REACTIONS (2)
  - PRURITUS [None]
  - RASH GENERALISED [None]
